FAERS Safety Report 15194091 (Version 1)
Quarter: 2018Q3

REPORT INFORMATION
  Report Type: Not Available
  Country: US (occurrence: US)
  Receive Date: 20180725
  Receipt Date: 20180725
  Transmission Date: 20181010
  Serious: Yes (Life-Threatening, Hospitalization, Other)
  Sender: FDA-Public Use
  Company Number: US-C B FLEET CO INC-201807-US-001537

PATIENT
  Age: 74 Year
  Sex: Female

DRUGS (1)
  1. BC ARTHRITIS [Suspect]
     Active Substance: ASPIRIN\CAFFEINE
     Indication: PAIN
     Dosage: 1?3 PER DAY
     Route: 048

REACTIONS (5)
  - Gastric haemorrhage [Recovering/Resolving]
  - Incorrect drug administration duration [None]
  - Gastric ulcer [Recovering/Resolving]
  - Vomiting [Recovered/Resolved]
  - Ulcer [Recovering/Resolving]

NARRATIVE: CASE EVENT DATE: 20180708
